FAERS Safety Report 10771427 (Version 2)
Quarter: 2015Q2

REPORT INFORMATION
  Report Type: Spontaneous
  Country: US (occurrence: US)
  Receive Date: 20150206
  Receipt Date: 20150515
  Transmission Date: 20150821
  Serious: Yes (Hospitalization, Other)
  Sender: FDA-Public Use
  Company Number: US-GLAXOSMITHKLINE-US2015014121

PATIENT
  Age: 50 Year
  Sex: Female

DRUGS (13)
  1. VENTOLIN HFA [Suspect]
     Active Substance: ALBUTEROL SULFATE
     Indication: ASTHMA
     Dosage: 2 PUFF(S), PRN
     Route: 055
  2. PLAVIX [Concomitant]
     Active Substance: CLOPIDOGREL BISULFATE
  3. GLIPIZIDE. [Concomitant]
     Active Substance: GLIPIZIDE
  4. PRAVASTATIN [Concomitant]
     Active Substance: PRAVASTATIN\PRAVASTATIN SODIUM
  5. OMEPRAZOLE. [Concomitant]
     Active Substance: OMEPRAZOLE
  6. FLEXERIL [Concomitant]
     Active Substance: CYCLOBENZAPRINE HYDROCHLORIDE
  7. SYMBICORT [Concomitant]
     Active Substance: BUDESONIDE\FORMOTEROL FUMARATE DIHYDRATE
  8. HYDROCODONE [Concomitant]
     Active Substance: HYDROCODONE
  9. LISINOPRIL. [Concomitant]
     Active Substance: LISINOPRIL
  10. METFORMIN [Concomitant]
     Active Substance: METFORMIN HYDROCHLORIDE
  11. CARVEDILOL. [Concomitant]
     Active Substance: CARVEDILOL
  12. XANAX [Concomitant]
     Active Substance: ALPRAZOLAM
  13. ASPIRIN. [Concomitant]
     Active Substance: ASPIRIN

REACTIONS (4)
  - Pain [Recovered/Resolved]
  - Stent placement [Unknown]
  - Myocardial infarction [Recovering/Resolving]
  - Atrioventricular block [Not Recovered/Not Resolved]

NARRATIVE: CASE EVENT DATE: 201412
